FAERS Safety Report 6314780-1 (Version None)
Quarter: 2009Q3

REPORT INFORMATION
  Report Type: 
  Country: None (occurrence: None)
  Receive Date: 20090817
  Receipt Date: 20090802
  Transmission Date: 20100115
  Serious: Yes (Hospitalization)
  Sender: FDA-Public Use
  Company Number: 2009S1013829

PATIENT
  Age: 62 Year
  Sex: Male

DRUGS (4)
  1. TICLOPIDINE HYDROCHLORIDE [Suspect]
     Indication: PROPHYLAXIS
     Dosage: 250 MG; TWICE A DAY
     Route: 048
  2. SIMVASTATIN [Concomitant]
  3. ENALAPRIL MALEATE [Concomitant]
  4. HYDROCHLOROTHIAZIDE [Concomitant]

REACTIONS (6)
  - BIOPSY SKIN ABNORMAL [None]
  - DECREASED APPETITE [None]
  - DIARRHOEA [None]
  - DRUG ERUPTION [None]
  - SKIN HYPERPIGMENTATION [None]
  - WEIGHT DECREASED [None]
